FAERS Safety Report 6152476-X (Version None)
Quarter: 2009Q2

REPORT INFORMATION
  Report Type: 
  Country: None (occurrence: None)
  Receive Date: 20090413
  Receipt Date: 20090408
  Transmission Date: 20091009
  Serious: Yes (Death)
  Sender: FDA-Public Use
  Company Number: PHHY2007BR00621

PATIENT
  Age: 65 Year
  Sex: Male

DRUGS (4)
  1. GALVUS [Suspect]
     Dosage: 100MG
     Route: 048
  2. METFORMIN HCL [Suspect]
     Dosage: 850 MG
  3. SUSTRATE [Concomitant]
  4. SIMVASTATIN [Concomitant]
     Indication: BLOOD CHOLESTEROL INCREASED

REACTIONS (1)
  - INFARCTION [None]
